FAERS Safety Report 12970751 (Version 1)
Quarter: 2016Q4

REPORT INFORMATION
  Report Type: Spontaneous
  Country: US (occurrence: US)
  Receive Date: 20161123
  Receipt Date: 20161123
  Transmission Date: 20170207
  Serious: Yes (Other)
  Sender: FDA-Public Use
  Company Number: US-APOTEX-2016AP014616

PATIENT
  Age: 81 Year
  Sex: Male

DRUGS (6)
  1. DROXIDOPA [Suspect]
     Active Substance: DROXIDOPA
     Dosage: 100 MG, TID
     Route: 048
     Dates: start: 20160903, end: 20160904
  2. AMIODARONE HYDROCHLORIDE. [Suspect]
     Active Substance: AMIODARONE HYDROCHLORIDE
     Indication: PRODUCT USED FOR UNKNOWN INDICATION
     Dosage: UNK
     Route: 065
  3. METOPROLOL. [Suspect]
     Active Substance: METOPROLOL
     Indication: PRODUCT USED FOR UNKNOWN INDICATION
     Dosage: UNK
     Route: 065
  4. DROXIDOPA [Suspect]
     Active Substance: DROXIDOPA
     Indication: PARKINSON^S DISEASE
     Dosage: UNK; TITRATION SCHEDULE B
     Route: 048
     Dates: start: 20160909
  5. DROXIDOPA [Suspect]
     Active Substance: DROXIDOPA
     Dosage: 200 MG, QD
     Route: 048
     Dates: start: 20160905, end: 20160906
  6. DROXIDOPA [Suspect]
     Active Substance: DROXIDOPA
     Indication: ORTHOSTATIC HYPOTENSION
     Dosage: 100 MG, TID
     Route: 048
     Dates: start: 20160912

REACTIONS (4)
  - Condition aggravated [Unknown]
  - Muscle rigidity [Unknown]
  - Seizure like phenomena [Unknown]
  - Adverse drug reaction [Unknown]

NARRATIVE: CASE EVENT DATE: 20160909
